FAERS Safety Report 10235823 (Version 2)
Quarter: 2014Q2

REPORT INFORMATION
  Report Type: Report from Study
  Country: US (occurrence: US)
  Receive Date: 20140613
  Receipt Date: 20140613
  Transmission Date: 20141212
  Serious: Yes (Life-Threatening, Hospitalization, Disabling, Other)
  Sender: FDA-Public Use
  Company Number: US-BEH-2011029448

PATIENT
  Age: 35 Year
  Sex: Female
  Weight: 94 kg

DRUGS (13)
  1. BERINERT P [Suspect]
     Route: 042
     Dates: start: 20100622, end: 20100622
  2. BERINERT P [Suspect]
     Indication: HEREDITARY ANGIOEDEMA
     Dosage: INFUSION RATE 5 MIN; 500 TO 1500 UNITS TWO TO THREE TIMES A WEEK
     Route: 042
     Dates: start: 20110712, end: 20110712
  3. BERINERT P [Suspect]
     Dosage: SECOND INFUSION
     Route: 042
     Dates: start: 20110712, end: 20110712
  4. PEPCID [Concomitant]
     Indication: GASTROOESOPHAGEAL REFLUX DISEASE
     Route: 048
     Dates: start: 201104
  5. BENADRYL [Concomitant]
     Indication: SWELLING
     Route: 048
     Dates: start: 201104
  6. ACETAMINOPHEN [Concomitant]
     Indication: PAIN
     Route: 048
     Dates: start: 201104, end: 201108
  7. VICODIN [Concomitant]
     Indication: PAIN
     Dosage: 500 MG PRN
     Route: 048
  8. ZYRTEC [Concomitant]
     Indication: MULTIPLE ALLERGIES
     Route: 048
     Dates: start: 201107
  9. SUDAFED [Concomitant]
     Indication: SWELLING
     Dates: start: 201107
  10. PREDNISONE [Concomitant]
  11. HYDROXYZINE HCL [Concomitant]
     Dates: start: 20110602
  12. IBUPROFEN [Concomitant]
     Route: 048
  13. KEFLEX [Concomitant]

REACTIONS (7)
  - Deep vein thrombosis [Recovered/Resolved]
  - Liver disorder [Recovered/Resolved]
  - Hepatic enzyme increased [Recovered/Resolved]
  - Abdominal pain [Recovered/Resolved]
  - Sphincter of Oddi dysfunction [Unknown]
  - Hepatic enzyme increased [Recovered/Resolved]
  - Drug ineffective for unapproved indication [Unknown]
